FAERS Safety Report 8183477-8 (Version None)
Quarter: 2012Q1

REPORT INFORMATION
  Report Type: 
  Country: None (occurrence: None)
  Receive Date: 20120130
  Receipt Date: 20110824
  Transmission Date: 20120608
  Serious: Yes (Hospitalization)
  Sender: FDA-Public Use
  Company Number: 039885

PATIENT
  Age: 38 Year
  Sex: Male
  Weight: 76 kg

DRUGS (20)
  1. SIMVASTATIN [Concomitant]
  2. AMOXICILLIN [Concomitant]
  3. LISINOPRIL [Concomitant]
  4. PHENYTOIN [Concomitant]
  5. LEVETIRACETAM [Suspect]
     Indication: EPILEPSY
  6. SUMATRIPTAN [Concomitant]
  7. ERYTHROMYCIN [Concomitant]
  8. IBUPROFEN [Concomitant]
  9. VERAPAMIL [Concomitant]
  10. DIMENHYDRINATE [Concomitant]
  11. PENICILLIN [Concomitant]
  12. LAMOTRIGINE [Concomitant]
  13. HYDROCORTISONE [Concomitant]
  14. ROSUVASTATIN [Concomitant]
  15. AMOXICILLIN W/CLAVUANATE POTASSIUM [Concomitant]
  16. NAPROXEN [Concomitant]
  17. LIDOCAINE [Concomitant]
  18. PRAVASTATIN [Concomitant]
  19. CLOBETASOL PROPIONATE [Concomitant]
  20. ASPIRIN [Concomitant]

REACTIONS (1)
  - GRAND MAL CONVULSION [None]
